FAERS Safety Report 8157887-9 (Version None)
Quarter: 2012Q1

REPORT INFORMATION
  Report Type: 
  Country: None (occurrence: None)
  Receive Date: 20120222
  Receipt Date: 20120210
  Transmission Date: 20120608
  Serious: Yes (Other)
  Sender: FDA-Public Use
  Company Number: PHHY2010JP80985

PATIENT
  Sex: Female
  Weight: 55 kg

DRUGS (26)
  1. LITHIUM CARBONATE [Concomitant]
     Dosage: 400 MG
     Route: 048
     Dates: start: 20101027
  2. INDERAL [Concomitant]
     Dosage: 10 MG, UNK
     Route: 048
  3. CLOZARIL [Suspect]
     Dosage: 12.5 MG, QD
     Route: 048
     Dates: start: 20101026, end: 20101027
  4. CLOZARIL [Suspect]
     Dosage: 225 MG, QD
     Route: 048
     Dates: start: 20101119, end: 20101120
  5. CLOZARIL [Suspect]
     Dosage: 250 MG, QD
     Route: 048
     Dates: start: 20101121, end: 20101123
  6. LAMICTAL [Suspect]
     Dosage: 50 MG, QD
     Route: 048
     Dates: start: 20101130, end: 20101207
  7. SILECE [Concomitant]
     Dosage: 2 MG
     Route: 048
     Dates: start: 20101027
  8. PROMETHAZINE HCL [Concomitant]
     Dosage: 25 MG, UNK
     Route: 048
     Dates: start: 20101027
  9. CLOZARIL [Suspect]
     Dosage: 50 MG, QD
     Route: 048
     Dates: start: 20101031, end: 20101101
  10. CLOZARIL [Suspect]
     Dosage: 125 MG, QD
     Route: 048
     Dates: start: 20101107, end: 20101108
  11. CLOZARIL [Suspect]
     Dosage: 100 MG, QD
     Route: 048
     Dates: start: 20101105, end: 20101106
  12. CLOZARIL [Suspect]
     Dosage: 150 MG, QD
     Route: 048
     Dates: start: 20101109, end: 20101112
  13. CLOZARIL [Suspect]
     Dosage: 275 MG, QD
     Route: 048
     Dates: start: 20101124, end: 20101129
  14. CLOZARIL [Suspect]
     Dosage: 175 MG, QD
     Route: 048
     Dates: start: 20101113, end: 20101115
  15. CLOZARIL [Suspect]
     Dosage: 325 MG, QD
     Route: 048
     Dates: start: 20101201, end: 20101204
  16. CLOZARIL [Suspect]
     Dosage: 75 MG, QD
     Route: 048
     Dates: start: 20101102, end: 20101104
  17. CLOZARIL [Suspect]
     Dosage: 200 MG, QD
     Route: 048
     Dates: start: 20101116, end: 20101118
  18. CLOZARIL [Suspect]
     Dosage: 350 MG, QD
     Route: 048
     Dates: start: 20101205, end: 20101206
  19. BICAMOL [Concomitant]
     Dosage: 2 MG, UNK
     Route: 048
  20. CLOZARIL [Suspect]
     Dosage: 25 MG, QD
     Route: 048
     Dates: start: 20101028, end: 20101030
  21. CLOZARIL [Suspect]
     Dosage: 300 MG, QD
     Route: 048
     Dates: start: 20101130, end: 20101130
  22. LAMICTAL [Suspect]
     Dosage: 25 MG, QD
     Route: 048
     Dates: start: 20101123, end: 20101129
  23. INDERAL [Concomitant]
     Dosage: 20 MG, UNK
     Route: 048
     Dates: start: 20101027
  24. LAMICTAL [Suspect]
     Dosage: 12.5 MG, QD
     Route: 048
     Dates: start: 20101117, end: 20101122
  25. BICAMOL [Concomitant]
     Dosage: 4 MG, UNK
     Route: 048
     Dates: start: 20101027
  26. CLOSTRIDIUM BUTYRICUM [Concomitant]
     Dosage: 2 DF
     Route: 048
     Dates: start: 20101115, end: 20101116

REACTIONS (8)
  - WHITE BLOOD CELL COUNT DECREASED [None]
  - DIARRHOEA [None]
  - NEUTROPENIA [None]
  - MONOCYTE COUNT INCREASED [None]
  - HEPATITIS [None]
  - DECREASED APPETITE [None]
  - SALIVARY HYPERSECRETION [None]
  - WHITE BLOOD CELL COUNT INCREASED [None]
